FAERS Safety Report 16657266 (Version 1)
Quarter: 2019Q3

REPORT INFORMATION
  Report Type: Spontaneous
  Country: SE (occurrence: SE)
  Receive Date: 20190801
  Receipt Date: 20190801
  Transmission Date: 20191004
  Serious: Yes (Other)
  Sender: FDA-Public Use
  Company Number: SE-ASTRAZENECA-2019SF06049

PATIENT
  Age: 79 Year
  Sex: Female

DRUGS (9)
  1. BRICANYL [Concomitant]
     Active Substance: TERBUTALINE SULFATE
     Dosage: 0.5 MG/DOSE
  2. OVESTERIN [Concomitant]
     Active Substance: ESTRIOL
  3. OXIS [Suspect]
     Active Substance: FORMOTEROL FUMARATE
     Indication: BRONCHITIS
     Route: 055
  4. NOVOPULMON NOVOLIZER [Suspect]
     Active Substance: BUDESONIDE
     Indication: BRONCHITIS
     Dosage: 800UG/INHAL DAILY
     Route: 055
     Dates: start: 20190618, end: 20190630
  5. FLUTIFORM [Concomitant]
     Active Substance: FLUTICASONE PROPIONATE\FORMOTEROL FUMARATE
     Dosage: FLUTIFORM 250 MICROGRAM/10 MICROGRAM/PUFF INHALATION SPRAY, SUSPENSION
  6. OXIS [Suspect]
     Active Substance: FORMOTEROL FUMARATE
     Indication: ASTHMA
     Route: 055
  7. NOVOPULMON NOVOLIZER [Suspect]
     Active Substance: BUDESONIDE
     Indication: ASTHMA
     Dosage: 800UG/INHAL DAILY
     Route: 055
     Dates: start: 20190618, end: 20190630
  8. LEVAXIN [Concomitant]
     Active Substance: LEVOTHYROXINE SODIUM
  9. ALVEDON FORTE [Concomitant]
     Active Substance: ACETAMINOPHEN
     Dosage: 1 G

REACTIONS (2)
  - Ageusia [Not Recovered/Not Resolved]
  - Anosmia [Not Recovered/Not Resolved]

NARRATIVE: CASE EVENT DATE: 20190624
